FAERS Safety Report 4903648-0 (Version None)
Quarter: 2006Q1

REPORT INFORMATION
  Report Type: 
  Country: None (occurrence: None)
  Receive Date: 20060208
  Receipt Date: 20060201
  Transmission Date: 20060701
  Serious: Yes (Other)
  Sender: FDA-Public Use
  Company Number: JP-SANOFI-SYNTHELABO-F01200600278

PATIENT
  Age: 68 Year
  Sex: Male
  Weight: 65 kg

DRUGS (3)
  1. OXALIPLATIN [Suspect]
     Indication: COLON CANCER
     Dosage: 135MG/BODY=82.8MG/M2 IN INFUSION ON DAY 1
     Route: 042
     Dates: start: 20050826, end: 20050826
  2. FLUOROURACIL [Suspect]
     Indication: COLON CANCER
     Dosage: 600MG/BODY =368.1MG/M2 IN BOLUS ON DAY 1 THEN 3800MG/BODY=2331.3MG/M2 AS CONTINUOUS INFUSION ON D
     Route: 042
     Dates: start: 20050826, end: 20050827
  3. CALCIUM LEVOFOLINATE [Suspect]
     Indication: COLON CANCER
     Dosage: 300MG/BODY=184.1MG/M2 IN INFUSION ON DAY 1
     Route: 042
     Dates: start: 20050826, end: 20050827

REACTIONS (2)
  - NEUTROPENIA [None]
  - PULMONARY INFARCTION [None]
